FAERS Safety Report 6775275-4 (Version None)
Quarter: 2010Q2

REPORT INFORMATION
  Report Type: 
  Country: None (occurrence: None)
  Receive Date: 20100617
  Receipt Date: 20100609
  Transmission Date: 20101027
  Serious: Yes (Hospitalization)
  Sender: FDA-Public Use
  Company Number: GXKR2010JP06356

PATIENT
  Age: 84 Year
  Sex: Female

DRUGS (11)
  1. AMLODIPINE [Suspect]
     Indication: HYPERTENSION
     Dosage: UNK
     Route: 065
     Dates: start: 20080701
  2. AMLODIPINE [Suspect]
     Indication: HYPERLIPIDAEMIA
  3. FUROSEMIDE (NGX) [Suspect]
     Indication: HYPERTENSION
     Dosage: UNK
     Dates: start: 20080701
  4. FUROSEMIDE (NGX) [Suspect]
     Indication: HYPERLIPIDAEMIA
  5. CANDESARTAN CILEXETIL [Suspect]
     Indication: HYPERTENSION
     Dosage: UNK
     Route: 065
     Dates: start: 20080701
  6. CANDESARTAN CILEXETIL [Suspect]
     Indication: HYPERLIPIDAEMIA
  7. PRAVASTATIN [Suspect]
     Indication: HYPERLIPIDAEMIA
     Dosage: UNK
     Dates: start: 20080701
  8. PRAVASTATIN [Suspect]
  9. HEPARIN [Suspect]
     Indication: DISSEMINATED INTRAVASCULAR COAGULATION
     Dosage: 8000 IU, UNK
  10. ROXATIDINE ACETATE HCL [Suspect]
     Indication: HYPERTENSION
     Dosage: UNK
     Dates: start: 20080701
  11. ROXATIDINE ACETATE HCL [Suspect]
     Indication: HYPERLIPIDAEMIA

REACTIONS (7)
  - DISSEMINATED INTRAVASCULAR COAGULATION [None]
  - DYSPNOEA [None]
  - ENDOTRACHEAL INTUBATION [None]
  - HEPARIN-INDUCED THROMBOCYTOPENIA [None]
  - INTERSTITIAL LUNG DISEASE [None]
  - MECHANICAL VENTILATION [None]
  - RALES [None]
